FAERS Safety Report 14547995 (Version 1)
Quarter: 2018Q1

REPORT INFORMATION
  Report Type: Spontaneous
  Country: US (occurrence: US)
  Receive Date: 20180219
  Receipt Date: 20180219
  Transmission Date: 20180509
  Serious: No
  Sender: FDA-Public Use
  Company Number: US-009507513-1801USA010900

PATIENT
  Age: 28 Year
  Sex: Female
  Weight: 74.83 kg

DRUGS (1)
  1. NEXPLANON [Suspect]
     Active Substance: ETONOGESTREL
     Indication: CONTRACEPTION
     Dosage: INSERTED IN LEFT ARM; EVERY 4 YEARS
     Route: 059
     Dates: start: 20170209

REACTIONS (3)
  - Amenorrhoea [Recovered/Resolved]
  - Menorrhagia [Unknown]
  - Incorrect drug administration duration [Unknown]

NARRATIVE: CASE EVENT DATE: 20170209
